FAERS Safety Report 8808665 (Version 1)
Quarter: 2012Q4

REPORT INFORMATION
  Report Type: 
  Country: AR (occurrence: AR)
  Receive Date: 20120926
  Receipt Date: 20120926
  Transmission Date: 20130627
  Serious: Yes (Other)
  Sender: FDA-Public Use
  Company Number: PHHY2012AR082808

PATIENT
  Sex: Female

DRUGS (1)
  1. EXFORGE [Suspect]
     Indication: HYPERTENSION
     Dosage: 1 DF Amlodipin 5mg and valsartan 320mg) daily
     Route: 048

REACTIONS (2)
  - Upper limb fracture [Recovering/Resolving]
  - Pain [Recovering/Resolving]
